FAERS Safety Report 12491799 (Version 1)
Quarter: 2016Q2

REPORT INFORMATION
  Report Type: Spontaneous
  Country: FR (occurrence: FR)
  Receive Date: 20160623
  Receipt Date: 20160623
  Transmission Date: 20160815
  Serious: Yes (Hospitalization)
  Sender: FDA-Public Use
  Company Number: FR-ROCHE-1781061

PATIENT
  Age: 80 Year
  Sex: Male
  Weight: 69.7 kg

DRUGS (17)
  1. ROCEPHINE [Suspect]
     Active Substance: CEFTRIAXONE SODIUM
     Indication: ANTIBIOTIC THERAPY
     Route: 065
     Dates: end: 20160518
  2. XARELTO [Suspect]
     Active Substance: RIVAROXABAN
     Indication: ANTICOAGULANT THERAPY
     Route: 048
     Dates: end: 20160518
  3. ZYLORIC [Concomitant]
     Active Substance: ALLOPURINOL
     Route: 065
  4. KARDEGIC [Concomitant]
     Active Substance: ASPIRIN LYSINE
     Route: 065
  5. INIPOMP [Concomitant]
     Active Substance: PANTOPRAZOLE SODIUM
     Route: 065
  6. COVERSYL [Concomitant]
     Active Substance: PERINDOPRIL
     Route: 065
  7. LEVOTHYROX [Concomitant]
     Active Substance: LEVOTHYROXINE
     Route: 065
  8. METFORMIN [Concomitant]
     Active Substance: METFORMIN HYDROCHLORIDE
     Route: 065
  9. JANUVIA [Concomitant]
     Active Substance: SITAGLIPTIN PHOSPHATE
  10. LOVENOX [Concomitant]
     Active Substance: ENOXAPARIN SODIUM
     Dosage: 6000 IU/0.6 ML
     Route: 065
  11. AMOXICILLINE [Concomitant]
     Active Substance: AMOXICILLIN
  12. LASILIX [Concomitant]
     Active Substance: FUROSEMIDE
     Route: 065
  13. DEROXAT [Concomitant]
     Active Substance: PAROXETINE HYDROCHLORIDE
     Route: 065
  14. PREVISCAN (FRANCE) [Concomitant]
     Active Substance: FLUINDIONE
  15. OFLOCET [Concomitant]
     Active Substance: OFLOXACIN
     Route: 065
  16. LOVENOX [Concomitant]
     Active Substance: ENOXAPARIN SODIUM
     Route: 065
  17. SOTALOL. [Concomitant]
     Active Substance: SOTALOL
     Dosage: 1/2 TABLET TWICE A DAY
     Route: 065

REACTIONS (6)
  - Blood alkaline phosphatase increased [Recovered/Resolved]
  - Coagulation factor V level decreased [Recovering/Resolving]
  - Prothrombin time shortened [Recovered/Resolved]
  - Transaminases increased [Recovered/Resolved]
  - Coagulation factor decreased [Recovered/Resolved]
  - Gamma-glutamyltransferase increased [Recovering/Resolving]

NARRATIVE: CASE EVENT DATE: 20160518
